FAERS Safety Report 11695752 (Version 1)
Quarter: 2015Q4

REPORT INFORMATION
  Report Type: Spontaneous
  Country: US (occurrence: US)
  Receive Date: 20151104
  Receipt Date: 20151104
  Transmission Date: 20160304
  Serious: Yes (Other)
  Sender: FDA-Public Use
  Company Number: US-DRREDDYS-USA/USA/15/0053741

PATIENT
  Age: 7 Year

DRUGS (5)
  1. SILDENAFIL. [Suspect]
     Active Substance: SILDENAFIL
     Indication: CONGENITAL SPINAL CORD ANOMALY
  2. SILDENAFIL. [Suspect]
     Active Substance: SILDENAFIL
     Indication: VASCULAR MALFORMATION
  3. SILDENAFIL. [Suspect]
     Active Substance: SILDENAFIL
     Indication: CONGENITAL SCOLIOSIS
  4. SILDENAFIL. [Suspect]
     Active Substance: SILDENAFIL
     Indication: VASCULAR MALFORMATION
     Route: 065
  5. SILDENAFIL. [Suspect]
     Active Substance: SILDENAFIL
     Indication: CONGENITAL MUSCULOSKELETAL ANOMALY

REACTIONS (5)
  - Headache [Unknown]
  - Haemorrhagic diathesis [Unknown]
  - Drug ineffective for unapproved indication [Unknown]
  - Product quality issue [Unknown]
  - Off label use [Unknown]
